FAERS Safety Report 11481314 (Version 7)
Quarter: 2016Q1

REPORT INFORMATION
  Report Type: Spontaneous
  Country: US (occurrence: US)
  Receive Date: 20150909
  Receipt Date: 20160209
  Transmission Date: 20160525
  Serious: No
  Sender: FDA-Public Use
  Company Number: US-ACTELION PHARMACEUTICALS US, INC.-A-NJ2015-121800

PATIENT
  Age: 60 Year
  Sex: Female

DRUGS (4)
  1. TRACLEER [Suspect]
     Active Substance: BOSENTAN
     Indication: PULMONARY ARTERIAL HYPERTENSION
     Dosage: UNK
     Route: 048
  2. REMODULIN [Suspect]
     Active Substance: TREPROSTINIL
     Dosage: 7 NG/KG, PER MIN
     Route: 042
     Dates: start: 20150726
  3. REMODULIN [Suspect]
     Active Substance: TREPROSTINIL
     Indication: PRODUCT USED FOR UNKNOWN INDICATION
     Dosage: 5 NG/KG, PER MIN
     Route: 042
  4. ADCIRCA [Concomitant]
     Active Substance: TADALAFIL

REACTIONS (16)
  - Tremor [Unknown]
  - Vomiting [Unknown]
  - Malaise [Unknown]
  - Dry skin [Unknown]
  - Feeling abnormal [Unknown]
  - Chills [Unknown]
  - Restless legs syndrome [Unknown]
  - Headache [Unknown]
  - Pain in extremity [Unknown]
  - Nausea [Unknown]
  - Skin exfoliation [Unknown]
  - Pain in jaw [Unknown]
  - Device infusion issue [Unknown]
  - Oedema [Recovered/Resolved]
  - Burning sensation [Unknown]
  - Fatigue [Unknown]

NARRATIVE: CASE EVENT DATE: 20150726
